FAERS Safety Report 6235979-9 (Version None)
Quarter: 2009Q2

REPORT INFORMATION
  Report Type: 
  Country: None (occurrence: None)
  Receive Date: 20090617
  Receipt Date: 20090617
  Transmission Date: 20091009
  Serious: No
  Sender: FDA-Public Use
  Company Number: None

PATIENT
  Age: 24 Year
  Sex: Female
  Weight: 56.6996 kg

DRUGS (2)
  1. ZICAM ZICAM LLC [Suspect]
     Indication: NASOPHARYNGITIS
     Dosage: ONE SWAB ONCE, IN EACH NOSTRIL EVERY 4 HOURS NASAL
     Route: 045
     Dates: start: 20090328, end: 20090402
  2. ZICAM ZICAM LLC [Suspect]
     Indication: NASOPHARYNGITIS
     Dosage: ONE SWAB ONCE, IN EACH NOSTRIL EVERY 4 HOURS NASAL
     Route: 045
     Dates: start: 20090518, end: 20090521

REACTIONS (1)
  - ANOSMIA [None]
